FAERS Safety Report 26102965 (Version 1)
Quarter: 2025Q4

REPORT INFORMATION
  Report Type: Spontaneous
  Country: MX (occurrence: MX)
  Receive Date: 20251128
  Receipt Date: 20251128
  Transmission Date: 20260118
  Serious: Yes (Other)
  Sender: ABBVIE
  Company Number: MX-ABBVIE-6567115

PATIENT
  Age: 52 Year
  Sex: Female
  Weight: 96 kg

DRUGS (6)
  1. HUMIRA [Suspect]
     Active Substance: ADALIMUMAB
     Indication: Ankylosing spondylitis
     Route: 058
     Dates: end: 202412
  2. OMEPRAZOLE [Concomitant]
     Active Substance: OMEPRAZOLE
     Indication: Gastrointestinal disorder prophylaxis
     Route: 048
  3. PREGABALIN [Concomitant]
     Active Substance: PREGABALIN
     Indication: Product used for unknown indication
     Dosage: ONE CAPSULE  AT NIGHT
     Dates: start: 20251122
  4. FOLIC ACID [Concomitant]
     Active Substance: FOLIC ACID
     Indication: Ankylosing spondylitis
     Dosage: ONE TABLET
     Route: 048
  5. METHOTREXATE [Concomitant]
     Active Substance: METHOTREXATE
     Indication: Ankylosing spondylitis
     Dosage: APPLY ONE MILLILITER
     Route: 058
  6. SIMPONI [Suspect]
     Active Substance: GOLIMUMAB
     Indication: Product used for unknown indication
     Dosage: ONE INJECTION
     Route: 058
     Dates: start: 202505

REACTIONS (13)
  - Hysterectomy [Recovered/Resolved with Sequelae]
  - Drug ineffective [Unknown]
  - Drug resistance [Unknown]
  - Tachycardia [Not Recovered/Not Resolved]
  - Hot flush [Not Recovered/Not Resolved]
  - Uterine leiomyoma [Unknown]
  - Cyst [Unknown]
  - Polyarthritis [Not Recovered/Not Resolved]
  - Drug ineffective [Unknown]
  - Frequent bowel movements [Not Recovered/Not Resolved]
  - Nausea [Not Recovered/Not Resolved]
  - Crohn^s disease [Not Recovered/Not Resolved]
  - Bowel movement irregularity [Not Recovered/Not Resolved]

NARRATIVE: CASE EVENT DATE: 20240101
